FAERS Safety Report 9381850 (Version 3)
Quarter: 2013Q3

REPORT INFORMATION
  Report Type: Spontaneous
  Country: US (occurrence: US)
  Receive Date: 20130703
  Receipt Date: 20130829
  Transmission Date: 20140515
  Serious: Yes (Other)
  Sender: FDA-Public Use
  Company Number: US-PFIZER INC-2013195441

PATIENT
  Sex: Female

DRUGS (13)
  1. LYRICA [Suspect]
     Dosage: 75 MG, 3X/DAY
     Route: 048
     Dates: start: 20130225
  2. SINGULAIR [Concomitant]
     Dosage: 10 MG, 1X/DAY (EVENING)
     Route: 048
  3. ADVAIR DISKUS [Concomitant]
     Dosage: 100-50 MCG/DOSE, 1 INHALATION EVERY 12 HOURS
     Route: 045
  4. CENTRUM SILVER [Concomitant]
  5. XANAX [Concomitant]
     Dosage: 0.5 MG, THREE TIMES A DAY AS NEEDED
     Route: 048
  6. NEURONTIN [Concomitant]
     Dosage: 300 MG, AS DIRECTED 3X/DAY
     Route: 048
  7. LO/OVRAL [Concomitant]
     Dosage: 0.3-30 MG-MCG, AS DIRECTED
     Route: 048
  8. HYDROCORTISONE [Concomitant]
     Dosage: UNK, TWICE DAY PRN AS DIRECTED
  9. TAMIFLU [Concomitant]
     Dosage: 75 MG, 2X/DAY
     Route: 048
  10. ADVIL [Concomitant]
     Dosage: 200 MG, EVERY 6 HRS
     Route: 048
  11. VENTOLIN HFA [Concomitant]
     Dosage: 108 (90 BASE), 2 PUFFS INHALATION QID PRN
     Route: 045
  12. VITAMIN D [Concomitant]
     Dosage: 1000 IU, 1X/DAY
     Route: 048
  13. FLONASE [Concomitant]
     Dosage: 50 MCG/ACT SUSPENSION, 2PUFF IN EACH NOSTRIL ONCE A DAY AT NIGHT BEFORE BED

REACTIONS (2)
  - Blindness [Unknown]
  - Cataract [Unknown]
